FAERS Safety Report 8230748-2 (Version None)
Quarter: 2012Q1

REPORT INFORMATION
  Report Type: 
  Country: None (occurrence: None)
  Receive Date: 20120323
  Receipt Date: 20120313
  Transmission Date: 20120608
  Serious: Yes (Other)
  Sender: FDA-Public Use
  Company Number: IT-JNJFOC-20120307834

PATIENT

DRUGS (6)
  1. RISPERIDONE [Suspect]
     Indication: SCHIZOPHRENIA
     Route: 065
  2. HALOPERIDOL [Suspect]
     Indication: BIPOLAR DISORDER
     Route: 065
  3. HALOPERIDOL [Suspect]
     Indication: SCHIZOPHRENIA
     Route: 065
  4. QUETIAPINE [Suspect]
     Indication: BIPOLAR DISORDER
     Route: 065
  5. QUETIAPINE [Suspect]
     Indication: SCHIZOPHRENIA
     Route: 065
  6. RISPERIDONE [Suspect]
     Indication: BIPOLAR DISORDER
     Route: 065

REACTIONS (5)
  - ENDOCRINE DISORDER [None]
  - SEDATION [None]
  - DRUG INEFFECTIVE [None]
  - EXTRAPYRAMIDAL DISORDER [None]
  - METABOLIC DISORDER [None]
